FAERS Safety Report 19654370 (Version 1)
Quarter: 2021Q3

REPORT INFORMATION
  Report Type: Spontaneous
  Country: BR (occurrence: BR)
  Receive Date: 20210804
  Receipt Date: 20210804
  Transmission Date: 20211014
  Serious: Yes (Other)
  Sender: FDA-Public Use
  Company Number: BR-NOVOPROD-833828

PATIENT
  Age: 81 Year
  Sex: Male
  Weight: 85 kg

DRUGS (10)
  1. CHLORTHALIDONE. [Concomitant]
     Active Substance: CHLORTHALIDONE
     Dosage: 25MG
     Route: 065
  2. OMEPRAZOLE. [Concomitant]
     Active Substance: OMEPRAZOLE
     Dosage: 20MG
     Route: 065
  3. DOXAZOSIN [Concomitant]
     Active Substance: DOXAZOSIN MESYLATE
     Dosage: 4MG
     Route: 065
  4. ROSUVASTATIN. [Concomitant]
     Active Substance: ROSUVASTATIN
     Dosage: 10MG
     Route: 065
  5. LOSARTAN. [Concomitant]
     Active Substance: LOSARTAN
     Dosage: 50MG
     Route: 065
  6. INSULIN GLARGINE [Concomitant]
     Active Substance: INSULIN GLARGINE
     Dosage: 148 IU, QD (120 IU EARLY AND 28 IU AT 10 PM)
     Route: 065
  7. LISPRO INSULIN [Concomitant]
     Active Substance: INSULIN LISPRO
     Dosage: 8UI COFFEE AND DINNER
     Route: 065
  8. AAS [Concomitant]
     Active Substance: ASPIRIN
     Dosage: 100MG
     Route: 065
  9. INSULATARD HM [Suspect]
     Active Substance: INSULIN HUMAN
     Indication: PRODUCT USED FOR UNKNOWN INDICATION
     Dosage: 100 IU, QD (NPH 65IU EARLY AND 35IU AT NIGHT )
     Route: 065
  10. AMLODIPINE [Concomitant]
     Active Substance: AMLODIPINE BESYLATE
     Dosage: 5MG
     Route: 065

REACTIONS (1)
  - Amaurosis [Unknown]
